FAERS Safety Report 20632157 (Version 1)
Quarter: 2022Q1

REPORT INFORMATION
  Report Type: Report from Study
  Country: BR (occurrence: BR)
  Receive Date: 20220324
  Receipt Date: 20220324
  Transmission Date: 20220423
  Serious: Yes (Hospitalization)
  Sender: FDA-Public Use
  Company Number: BR-NOVARTISPH-NVSC2020BR082824

PATIENT
  Age: 62 Year
  Sex: Male

DRUGS (6)
  1. COSENTYX [Suspect]
     Active Substance: SECUKINUMAB
     Indication: Psoriatic arthropathy
     Dosage: UNK
     Route: 065
     Dates: start: 20170802
  2. COSENTYX [Suspect]
     Active Substance: SECUKINUMAB
     Dosage: 300 MG
     Route: 065
     Dates: start: 20170803
  3. COSENTYX [Suspect]
     Active Substance: SECUKINUMAB
     Dosage: UNK
     Route: 065
     Dates: start: 20200311
  4. COSENTYX [Suspect]
     Active Substance: SECUKINUMAB
     Dosage: UNK
     Route: 065
     Dates: start: 20210113
  5. COSENTYX [Suspect]
     Active Substance: SECUKINUMAB
     Dosage: 300 MG, UNKNOWN
     Route: 065
     Dates: start: 20210513
  6. COSENTYX [Suspect]
     Active Substance: SECUKINUMAB
     Dosage: UNK
     Route: 065
     Dates: start: 20220213

REACTIONS (18)
  - Pneumonia bacterial [Unknown]
  - Diabetes mellitus [Recovered/Resolved]
  - Malaise [Unknown]
  - Hyperglycaemia [Unknown]
  - Coma [Unknown]
  - Hyperhidrosis [Recovering/Resolving]
  - Skin odour abnormal [Recovering/Resolving]
  - Psoriasis [Not Recovered/Not Resolved]
  - Atrophy [Recovering/Resolving]
  - Musculoskeletal stiffness [Recovering/Resolving]
  - Skin discolouration [Not Recovered/Not Resolved]
  - Hypoacusis [Not Recovered/Not Resolved]
  - Vaccination site exfoliation [Unknown]
  - Device issue [Unknown]
  - Product odour abnormal [Recovering/Resolving]
  - Accidental exposure to product [Unknown]
  - Wrong technique in product usage process [Unknown]
  - Therapeutic product effect incomplete [Unknown]

NARRATIVE: CASE EVENT DATE: 20200210
